FAERS Safety Report 7919145-4 (Version None)
Quarter: 2011Q4

REPORT INFORMATION
  Report Type: 
  Country: None (occurrence: None)
  Receive Date: 20111117
  Receipt Date: 20111107
  Transmission Date: 20120403
  Serious: Yes (Hospitalization)
  Sender: FDA-Public Use
  Company Number: US-ROCHE-1012293

PATIENT
  Sex: Female

DRUGS (6)
  1. CYCLOPHOSPHAMIDE [Suspect]
     Indication: BREAST CANCER
     Dosage: EVERY 21 DAYS FOR 4 CYCLES
     Route: 042
     Dates: start: 20001128
  2. PACLITAXEL [Suspect]
     Indication: BREAST CANCER
     Dosage: GIVEN FOR 12 WEEKS STARTING ON WEEK 13
  3. HERCEPTIN [Suspect]
     Indication: BREAST CANCER
     Dosage: LOADING DOSE.
     Route: 042
  4. HERCEPTIN [Suspect]
     Dosage: MAINTENANCE DOSE, GIVEN ON DAY 1 FOR 52 WEEKS STARTING ON WEEK.
     Route: 042
  5. TAMOXIFEN CITRATE [Suspect]
     Indication: BREAST CANCER
     Dosage: AFTER 5 WEEKS OF LAST PACLITAXEL DOSE.
     Route: 048
  6. DOXORUBICIN HCL [Suspect]
     Indication: BREAST CANCER
     Dosage: EVERY 21 DAYS FOR 4 CYCLES
     Route: 042
     Dates: start: 20001128

REACTIONS (1)
  - ACUTE CORONARY SYNDROME [None]
